FAERS Safety Report 5352566-5 (Version None)
Quarter: 2007Q2

REPORT INFORMATION
  Report Type: 
  Country: None (occurrence: None)
  Receive Date: 20070611
  Receipt Date: 20070529
  Transmission Date: 20071010
  Serious: Yes (Disabling)
  Sender: FDA-Public Use
  Company Number: JP-ROCHE-500293

PATIENT
  Age: 24 Year
  Sex: Male

DRUGS (10)
  1. SAQUINAVIR [Suspect]
     Indication: HIV INFECTION
     Route: 048
     Dates: start: 19991101, end: 20000318
  2. SAQUINAVIR [Suspect]
     Route: 048
     Dates: start: 20000524, end: 20001224
  3. CRIXIVAN [Suspect]
     Indication: DRUG USE FOR UNKNOWN INDICATION
     Route: 048
     Dates: start: 20000318, end: 20000524
  4. VIDEX [Suspect]
     Indication: DRUG USE FOR UNKNOWN INDICATION
     Dosage: DOSE FORM: ORAL FORMULATION (NOT OTHERWISE SPECIFIED).
     Route: 048
     Dates: start: 19991101
  5. ZERIT [Suspect]
     Indication: DRUG USE FOR UNKNOWN INDICATION
     Route: 048
     Dates: start: 20001225, end: 20011020
  6. NORVIR [Suspect]
     Indication: DRUG USE FOR UNKNOWN INDICATION
     Route: 048
     Dates: start: 19991101, end: 20001224
  7. KALETRA [Suspect]
     Indication: DRUG USE FOR UNKNOWN INDICATION
     Route: 048
     Dates: start: 20001225
  8. STOCRIN [Concomitant]
     Dosage: THE DRUG WAS INTERRUPTED FROM 02 OCT 2000 TO 24 JUL 2001
     Route: 048
     Dates: start: 20000925, end: 20010725
  9. ZIAGEN [Concomitant]
     Route: 048
     Dates: start: 20000724, end: 20000725
  10. CROSSEIGHT M [Concomitant]
     Dosage: ROUTE REPORTED AS INJECTABLE (NOT OTHERWISE SPECIFIED). TAKEN 9-10 TIMES PER MONTH.
     Route: 050
     Dates: start: 19991101

REACTIONS (2)
  - CARDIOMEGALY [None]
  - PULMONARY HYPERTENSION [None]
